FAERS Safety Report 10581631 (Version 1)
Quarter: 2014Q4

REPORT INFORMATION
  Report Type: Spontaneous
  Country: US (occurrence: US)
  Receive Date: 20141113
  Receipt Date: 20141113
  Transmission Date: 20150529
  Serious: Yes (Death)
  Sender: FDA-Public Use
  Company Number: GXBR2014US002387

PATIENT
  Sex: Female

DRUGS (3)
  1. AMIODARONE HYDROCHLORIDE. [Suspect]
     Active Substance: AMIODARONE HYDROCHLORIDE
     Indication: PRODUCT USED FOR UNKNOWN INDICATION
     Dosage: UNK MG, UNK
     Route: 065
     Dates: start: 2006, end: 20131223
  2. AMIODARONE HYDROCHLORIDE. [Suspect]
     Active Substance: AMIODARONE HYDROCHLORIDE
     Indication: OFF LABEL USE
  3. XARELTO [Suspect]
     Active Substance: RIVAROXABAN
     Indication: PRODUCT USED FOR UNKNOWN INDICATION
     Dosage: UNK MG, UNK
     Route: 065
     Dates: start: 20131214, end: 20131223

REACTIONS (5)
  - Drug interaction [Unknown]
  - Incorrect drug administration duration [Unknown]
  - Incorrect dose administered [Unknown]
  - Haemorrhage [Fatal]
  - Hepatitis [Fatal]
